FAERS Safety Report 9659442 (Version 1)
Quarter: 2013Q4

REPORT INFORMATION
  Report Type: Spontaneous
  Country: US (occurrence: US)
  Receive Date: 20131031
  Receipt Date: 20131031
  Transmission Date: 20140711
  Serious: Yes (Other)
  Sender: FDA-Public Use
  Company Number: US-JNJFOC-20131018476

PATIENT
  Sex: 0

DRUGS (2)
  1. USTEKINUMAB [Suspect]
     Indication: PSORIASIS
     Dosage: WEEK 0, 4 AND THEN EVERY 12 WEEKS
     Route: 058
  2. ACITRETIN [Suspect]
     Indication: PSORIASIS
     Dosage: 10 TO 25 MG DAILY
     Route: 065

REACTIONS (1)
  - Basal cell carcinoma [Unknown]
